FAERS Safety Report 9569395 (Version 2)
Quarter: 2013Q3

REPORT INFORMATION
  Report Type: Spontaneous
  Country: US (occurrence: US)
  Receive Date: 20130930
  Receipt Date: 20130930
  Transmission Date: 20140515
  Serious: No
  Sender: FDA-Public Use
  Company Number: US-AMGEN-USASP2013057532

PATIENT
  Age: 51 Year
  Sex: Female
  Weight: 54.42 kg

DRUGS (5)
  1. ENBREL [Suspect]
     Indication: RHEUMATOID ARTHRITIS
     Dosage: 50 MG, QWK
     Route: 058
     Dates: start: 20130522
  2. LOSARTAN [Concomitant]
     Dosage: UNK
     Route: 048
  3. AMLODIPINE [Concomitant]
     Dosage: UNK
     Route: 048
  4. PAROXETINE [Concomitant]
     Dosage: UNK
     Route: 048
  5. CALTINE [Concomitant]
     Dosage: UNK
     Route: 048

REACTIONS (1)
  - White blood cell count decreased [Not Recovered/Not Resolved]
